FAERS Safety Report 7709719-8 (Version None)
Quarter: 2011Q3

REPORT INFORMATION
  Report Type: 
  Country: None (occurrence: None)
  Receive Date: 20110825
  Receipt Date: 20110821
  Transmission Date: 20111222
  Serious: Yes (Hospitalization)
  Sender: FDA-Public Use
  Company Number: AU-GLAXOSMITHKLINE-B0741905A

PATIENT
  Sex: Female

DRUGS (1)
  1. ZOFRAN [Suspect]
     Indication: VOMITING
     Route: 065
     Dates: start: 20070101

REACTIONS (8)
  - ABDOMINAL PAIN [None]
  - FEELING ABNORMAL [None]
  - ASTHENIA [None]
  - MATERNAL EXPOSURE DURING PREGNANCY [None]
  - PRE-ECLAMPSIA [None]
  - DRUG INEFFECTIVE [None]
  - NEPHROLITHIASIS [None]
  - DEPRESSION [None]
